FAERS Safety Report 16419323 (Version 1)
Quarter: 2019Q2

REPORT INFORMATION
  Report Type: Spontaneous
  Country: US (occurrence: US)
  Receive Date: 20190612
  Receipt Date: 20190612
  Transmission Date: 20190711
  Serious: Yes (Other)
  Sender: FDA-Public Use
  Company Number: US-ACCORD-131966

PATIENT
  Age: 26 Year
  Sex: Female

DRUGS (12)
  1. DONEPEZIL/DONEPEZIL HYDROCHLORIDE [Suspect]
     Active Substance: DONEPEZIL HYDROCHLORIDE
     Indication: COGNITIVE REHABILITATION
     Dosage: INITIATED WITH 5 MG DAILY, LATERINCREASED TO 5 MG TWICE DAILY, 10 MG FOR TOTAL OF 15 MG DAILY
  2. CEFALEXIN [Concomitant]
     Active Substance: CEPHALEXIN
     Indication: CELLULITIS
     Dosage: 500 MG 4 TIMES DAILY
  3. OLANZAPINE. [Concomitant]
     Active Substance: OLANZAPINE
  4. DIPHENHYDRAMINE. [Concomitant]
     Active Substance: DIPHENHYDRAMINE
     Indication: AGITATION
     Route: 030
  5. MONTELUKAST [Concomitant]
     Active Substance: MONTELUKAST SODIUM
     Indication: ASTHMA
     Dosage: 10 MG DAILY
  6. SERTRALINE [Suspect]
     Active Substance: SERTRALINE HYDROCHLORIDE
     Indication: MAJOR DEPRESSION
     Dosage: 7-DAY TRIAL
  7. PANTOPRAZOLE [Suspect]
     Active Substance: PANTOPRAZOLE
     Indication: GASTROOESOPHAGEAL REFLUX DISEASE
     Dosage: 40 MG DAILY DOSE
  8. CALCIUM/COLECALCIFEROL [Concomitant]
     Indication: NUTRITIONAL SUPPLEMENTATION
     Dosage: DAILY FOR NUTRITIONAL DEFICIENCY
  9. QUETIAPINE. [Suspect]
     Active Substance: QUETIAPINE
     Indication: AGGRESSION
     Dosage: 100 MG IN THE MORNING, 200 MG AT?NOON, AND 300 MG AT BEDTIME. ?DOSE REDUCED TO 50 MG 3 TIMES DAILY
     Route: 048
  10. METOPROLOL. [Concomitant]
     Active Substance: METOPROLOL
     Indication: TACHYCARDIA
     Dosage: 25 MG DAILY
  11. MACROGOL [Concomitant]
     Active Substance: POLYETHYLENE GLYCOLS
     Indication: CONSTIPATION
  12. VALPROIC ACID. [Concomitant]
     Active Substance: VALPROIC ACID
     Indication: SEIZURE
     Dosage: 500 MG TWICE DAILY

REACTIONS (3)
  - Agitation [Unknown]
  - Electrocardiogram QT prolonged [Recovered/Resolved]
  - Sedation [Unknown]
